FAERS Safety Report 8679288 (Version 3)
Quarter: 2012Q4

REPORT INFORMATION
  Report Type: 
  Country: FR (occurrence: FR)
  Receive Date: 20120724
  Receipt Date: 20121022
  Transmission Date: 20130627
  Serious: Yes (Hospitalization, Other)
  Sender: FDA-Public Use
  Company Number: PHHY2012FR062306

PATIENT
  Sex: Male

DRUGS (26)
  1. ZOMETA [Suspect]
     Dates: start: 20120515
  2. DEXAMETHASONE [Suspect]
     Dosage: 4 mg, BID
     Dates: start: 20120404, end: 20120516
  3. ONDANSETRON [Suspect]
     Dosage: 8 mg, daily
     Route: 042
  4. OXYCONTIN [Suspect]
     Dosage: 90 mg, daily
  5. LYRICA [Suspect]
     Dosage: 100 mg, BID
     Route: 048
  6. ALIMTA [Suspect]
     Indication: LUNG ADENOCARCINOMA
     Dosage: 500 mg/m2, UNK
     Route: 042
     Dates: start: 20120305
  7. ALIMTA [Suspect]
     Dosage: 500 mg/m2, UNK
     Route: 042
     Dates: start: 20120327
  8. ALIMTA [Suspect]
     Dosage: 500 mg/m2, UNK
     Route: 042
     Dates: start: 20120417
  9. ALIMTA [Suspect]
     Dosage: 500 mg/m2, UNK
     Route: 042
     Dates: start: 20120515
  10. CISPLATIN [Suspect]
     Indication: LUNG ADENOCARCINOMA
     Dosage: 75 mg/m2, UNK
     Route: 042
     Dates: start: 20120305
  11. CISPLATIN [Suspect]
     Dosage: 75 mg/m2, UNK
     Route: 042
     Dates: start: 20120327
  12. CISPLATIN [Suspect]
     Dosage: 75 mg/m2, UNK
     Route: 042
     Dates: start: 20120417
  13. CISPLATIN [Suspect]
     Dosage: 75 mg/m2, UNK
     Route: 042
     Dates: start: 20120515
  14. EMEND [Suspect]
     Dosage: 125 mg, daily
     Route: 048
     Dates: start: 20120305
  15. EMEND [Suspect]
     Dosage: 125 mg, daily
     Route: 048
     Dates: start: 20120327
  16. EMEND [Suspect]
     Dosage: 125 mg, daily
     Route: 048
     Dates: start: 20120417
  17. EMEND [Suspect]
     Dosage: 125 mg, daily
     Route: 048
     Dates: start: 20120515
  18. METHYLPREDNISOLONE [Suspect]
     Dosage: 120 mg, UNK
     Route: 042
     Dates: start: 20120305
  19. METHYLPREDNISOLONE [Suspect]
     Dosage: 120 mg, UNK
     Route: 042
     Dates: start: 20120327
  20. METHYLPREDNISOLONE [Suspect]
     Dosage: 120 mg, UNK
     Route: 042
     Dates: start: 20120417
  21. METHYLPREDNISOLONE [Suspect]
     Dosage: 120 mg, UNK
     Route: 042
     Dates: start: 20120515
  22. SPECIAFOLDINE [Suspect]
     Dosage: 0.4 mg, daily one week
     Route: 048
     Dates: start: 201203
  23. SCOPOLAMINE [Concomitant]
     Dosage: UNK UKN, UNK
  24. LYSANXIA [Concomitant]
     Dosage: UNK UKN, UNK
  25. OXYNORM [Concomitant]
     Dosage: 5 mg, as needed
  26. VITAMIN B12 [Concomitant]
     Dosage: 1000 ug, UNK
     Route: 030

REACTIONS (3)
  - Dyspnoea [Not Recovered/Not Resolved]
  - Haemolytic anaemia [Not Recovered/Not Resolved]
  - Pain [Unknown]
